FAERS Safety Report 16887273 (Version 1)
Quarter: 2019Q4

REPORT INFORMATION
  Report Type: Spontaneous
  Country: BR (occurrence: BR)
  Receive Date: 20191004
  Receipt Date: 20191004
  Transmission Date: 20200122
  Serious: Yes (Other)
  Sender: FDA-Public Use
  Company Number: BR-JNJFOC-20191001690

PATIENT
  Age: 64 Year
  Sex: Female

DRUGS (5)
  1. XARELTO [Suspect]
     Active Substance: RIVAROXABAN
     Indication: PRODUCT USED FOR UNKNOWN INDICATION
     Dosage: 1 TABLET QD
     Route: 048
     Dates: start: 2015
  2. LIXIANA [Suspect]
     Active Substance: EDOXABAN TOSYLATE
     Indication: PRODUCT USED FOR UNKNOWN INDICATION
     Route: 065
  3. REUQUINOL [Concomitant]
     Active Substance: HYDROXYCHLOROQUINE SULFATE
  4. XARELTO [Suspect]
     Active Substance: RIVAROXABAN
     Dosage: 1 TABLET QD
     Route: 048
     Dates: start: 201909
  5. XARELTO [Suspect]
     Active Substance: RIVAROXABAN
     Dosage: 1 TABLET QD
     Route: 048

REACTIONS (8)
  - Pharyngeal exudate [Unknown]
  - Burning sensation [Unknown]
  - Epistaxis [Recovered/Resolved]
  - Pain [Unknown]
  - Pharyngeal haemorrhage [Unknown]
  - Blood urine present [Unknown]
  - Fatigue [Unknown]
  - Limb discomfort [Unknown]

NARRATIVE: CASE EVENT DATE: 201909
